FAERS Safety Report 19304956 (Version 1)
Quarter: 2021Q2

REPORT INFORMATION
  Report Type: Spontaneous
  Country: US (occurrence: US)
  Receive Date: 20210526
  Receipt Date: 20210526
  Transmission Date: 20210717
  Serious: No
  Sender: FDA-Public Use
  Company Number: US-SA-2021SA170322

PATIENT
  Sex: Male

DRUGS (1)
  1. DUPIXENT [Suspect]
     Active Substance: DUPILUMAB
     Indication: SEBORRHOEIC DERMATITIS
     Dosage: 300 MG, QOW

REACTIONS (3)
  - Cough [Not Recovered/Not Resolved]
  - Tooth infection [Not Recovered/Not Resolved]
  - Product use in unapproved indication [Unknown]
